FAERS Safety Report 8087113 (Version 3)
Quarter: 2013Q1

REPORT INFORMATION
  Report Type: Report from Study
  Country: US (occurrence: US)
  Receive Date: 20110811
  Receipt Date: 20130218
  Transmission Date: 20140127
  Serious: Yes (Death)
  Sender: FDA-Public Use
  Company Number: US-MPIJNJ-2011-03521

PATIENT
  Age: 78 Year
  Sex: Female

DRUGS (4)
  1. VELCADE [Suspect]
     Indication: PLASMA CELL MYELOMA
  2. THALIDOMIDE [Suspect]
     Indication: PLASMA CELL MYELOMA
  3. PREDNISONE [Suspect]
     Indication: PLASMA CELL MYELOMA
  4. DEXAMETHASONE [Suspect]
     Indication: PLASMA CELL MYELOMA

REACTIONS (1)
  - Coronary artery disease [Fatal]
